FAERS Safety Report 25336868 (Version 1)
Quarter: 2025Q2

REPORT INFORMATION
  Report Type: Spontaneous
  Country: FI (occurrence: FI)
  Receive Date: 20250520
  Receipt Date: 20250520
  Transmission Date: 20250717
  Serious: Yes (Hospitalization)
  Sender: PFIZER
  Company Number: None

PATIENT
  Age: 40 Year
  Sex: Female

DRUGS (2)
  1. CYTOTEC [Suspect]
     Active Substance: MISOPROSTOL
     Indication: Postpartum haemorrhage
     Route: 048
     Dates: start: 20241205
  2. SYNTOCINON [Concomitant]
     Active Substance: OXYTOCIN
     Indication: Delivery
     Dates: start: 20241204

REACTIONS (6)
  - Tremor [Recovered/Resolved]
  - Chills [Recovered/Resolved]
  - Speech disorder [Recovered/Resolved]
  - Dyspnoea [Recovered/Resolved]
  - Pyrexia [Recovered/Resolved]
  - Off label use [Recovered/Resolved]

NARRATIVE: CASE EVENT DATE: 20241205
